FAERS Safety Report 5717821 (Version 5)
Quarter: 2021Q2

REPORT INFORMATION
  Report Type: Spontaneous
  Country: GB (occurrence: GB)
  Receive Date: 20050119
  Receipt Date: 20210602
  Transmission Date: 20210717
  Serious: Yes (Death)
  Sender: FDA-Public Use
  Company Number: GB-ROCHE-391987

PATIENT
  Age: 21 Year
  Sex: Male
  Weight: 49.4 kg

DRUGS (3)
  1. ROACCUTANE [Suspect]
     Active Substance: ISOTRETINOIN
     Indication: ACNE CYSTIC
     Route: 048
     Dates: end: 20000915
  2. PREDNISOLONE. [Concomitant]
     Active Substance: PREDNISOLONE
     Indication: ACNE CYSTIC
     Dosage: THE PATIENT RESTARTED PREDNISOLONE ON 08 OCT 1999 AND STOPPED PREDNISOLONE ON 28 FEB 2000. ROUTE: T+
     Dates: start: 19970224, end: 19980524
  3. ROACCUTANE [Suspect]
     Active Substance: ISOTRETINOIN
     Indication: ACNE
     Route: 048
     Dates: start: 19970224, end: 1999

REACTIONS (1)
  - Completed suicide [Fatal]

NARRATIVE: CASE EVENT DATE: 200405
